FAERS Safety Report 23492257 (Version 2)
Quarter: 2025Q2

REPORT INFORMATION
  Report Type: Report from Study
  Country: US (occurrence: US)
  Receive Date: 20240207
  Receipt Date: 20250626
  Transmission Date: 20250717
  Serious: Yes (Other)
  Sender: ESTEVE
  Company Number: US-ORG100014127-2023000721

PATIENT
  Age: 39 Year
  Sex: Female

DRUGS (20)
  1. LYSODREN [Suspect]
     Active Substance: MITOTANE
     Indication: Adrenocortical carcinoma
     Dates: start: 20230522, end: 20230524
  2. LYSODREN [Suspect]
     Active Substance: MITOTANE
     Indication: Myelofibrosis
  3. LYSODREN [Suspect]
     Active Substance: MITOTANE
     Dates: start: 20230525, end: 20230527
  4. VITAMIN B12 [Concomitant]
     Active Substance: CYANOCOBALAMIN
  5. PAROXETINE [Concomitant]
     Active Substance: PAROXETINE
  6. ONDANSETRON [Concomitant]
     Active Substance: ONDANSETRON
  7. LORAZEPAM [Concomitant]
     Active Substance: LORAZEPAM
  8. LEVOTHYROXINE [Concomitant]
     Active Substance: LEVOTHYROXINE
  9. A-HYDROCORT [Concomitant]
     Active Substance: HYDROCORTISONE SODIUM SUCCINATE
  10. ERGOCALCIFER [Concomitant]
  11. CLOBETASOL [Concomitant]
     Active Substance: CLOBETASOL
  12. VITAMIN D3 [Concomitant]
     Active Substance: CHOLECALCIFEROL
  13. PAXIL [Concomitant]
     Active Substance: PAROXETINE HYDROCHLORIDE
  14. JAKAFI [Concomitant]
     Active Substance: RUXOLITINIB
  15. LYSODREN [Suspect]
     Active Substance: MITOTANE
  16. LYSODREN [Suspect]
     Active Substance: MITOTANE
  17. LYSODREN [Suspect]
     Active Substance: MITOTANE
  18. LYSODREN [Suspect]
     Active Substance: MITOTANE
     Dates: start: 20230625
  19. LYSODREN [Suspect]
     Active Substance: MITOTANE
     Dates: start: 20230611, end: 20230624
  20. LYSODREN [Suspect]
     Active Substance: MITOTANE
     Dates: start: 20230528, end: 20230610

REACTIONS (5)
  - Suspected drug-induced liver injury [Not Recovered/Not Resolved]
  - Off label use [Unknown]
  - Product use complaint [Not Recovered/Not Resolved]
  - Nausea [Not Recovered/Not Resolved]
  - Hypothyroidism [Not Recovered/Not Resolved]

NARRATIVE: CASE EVENT DATE: 20230101
